FAERS Safety Report 26068557 (Version 2)
Quarter: 2025Q4

REPORT INFORMATION
  Report Type: Report from Study
  Country: EU (occurrence: EU)
  Receive Date: 20251120
  Receipt Date: 20251127
  Transmission Date: 20260119
  Serious: Yes (Hospitalization)
  Sender: TAKEDA
  Company Number: EU-TAKEDA-2025TUS103601

PATIENT
  Age: 59 Year
  Sex: Male

DRUGS (3)
  1. RURIOCTOCOG ALFA PEGOL [Suspect]
     Active Substance: RURIOCTOCOG ALFA PEGOL
     Indication: Factor VIII deficiency
     Dosage: UNK
  2. RURIOCTOCOG ALFA PEGOL [Suspect]
     Active Substance: RURIOCTOCOG ALFA PEGOL
     Dosage: UNK
  3. RURIOCTOCOG ALFA PEGOL [Suspect]
     Active Substance: RURIOCTOCOG ALFA PEGOL
     Dosage: 3000 INTERNATIONAL UNIT, QD

REACTIONS (3)
  - Large intestine polyp [Recovered/Resolved]
  - Headache [Unknown]
  - Heart rate increased [Unknown]

NARRATIVE: CASE EVENT DATE: 20251113
